FAERS Safety Report 7569433-9 (Version None)
Quarter: 2011Q2

REPORT INFORMATION
  Report Type: 
  Country: None (occurrence: None)
  Receive Date: 20110624
  Receipt Date: 20110616
  Transmission Date: 20111010
  Serious: Yes (Hospitalization)
  Sender: FDA-Public Use
  Company Number: US-BIOGENIDEC-2009BI025170

PATIENT
  Age: 24 Year
  Sex: Male

DRUGS (3)
  1. NAPROSYN [Concomitant]
     Indication: MIGRAINE
  2. TYSABRI [Suspect]
     Indication: MULTIPLE SCLEROSIS
     Route: 042
     Dates: start: 20090107
  3. PHENERGAN HCL [Concomitant]
     Indication: NAUSEA
     Route: 048

REACTIONS (5)
  - NAUSEA [None]
  - GASTROENTERITIS [None]
  - MULTIPLE SCLEROSIS [None]
  - SYNCOPE [None]
  - MULTIPLE SCLEROSIS RELAPSE [None]
